FAERS Safety Report 5000588-6 (Version None)
Quarter: 2006Q2

REPORT INFORMATION
  Report Type: 
  Country: None (occurrence: None)
  Receive Date: 20060512
  Receipt Date: 20060504
  Transmission Date: 20061013
  Serious: Yes (Other)
  Sender: FDA-Public Use
  Company Number: GB-JNJFOC-20060501562

PATIENT
  Age: 26 Year
  Sex: Female

DRUGS (3)
  1. NIZORAL [Suspect]
     Indication: BLOOD CORTICOTROPHIN INCREASED
     Route: 065
  2. METYRAPONE [Suspect]
     Indication: BLOOD CORTICOTROPHIN INCREASED
     Route: 065
  3. GLUCOCORTICOIDS [Suspect]
     Indication: BLOOD CORTICOTROPHIN INCREASED
     Route: 065

REACTIONS (1)
  - PNEUMOCYSTIS JIROVECI PNEUMONIA [None]
